FAERS Safety Report 5300489-X (Version None)
Quarter: 2007Q2

REPORT INFORMATION
  Report Type: 
  Country: None (occurrence: None)
  Receive Date: 20070418
  Receipt Date: 20070405
  Transmission Date: 20071010
  Serious: Yes (Hospitalization, Other)
  Sender: FDA-Public Use
  Company Number: PHEH2007US04285

PATIENT
  Age: 17 Year
  Sex: Female

DRUGS (6)
  1. ZELNORM [Suspect]
     Indication: IRRITABLE BOWEL SYNDROME
     Dosage: 6 MG, BID
     Dates: start: 20050101, end: 20070404
  2. CONCERTA [Concomitant]
     Indication: DEPRESSION
     Dates: start: 20060101
  3. CYMBALTA [Concomitant]
     Indication: DEPRESSION
  4. SYNTHROID [Concomitant]
  5. NEXIUM [Concomitant]
     Dosage: UNK, UNK
     Dates: start: 20060801
  6. PREVACID [Concomitant]
     Dosage: UNK, UNK
     Dates: end: 20060801

REACTIONS (10)
  - ABDOMINAL PAIN [None]
  - CHOLECYSTECTOMY [None]
  - HAEMATOCHEZIA [None]
  - HALLUCINATION [None]
  - HEADACHE [None]
  - HEPATIC FUNCTION ABNORMAL [None]
  - HYPERTENSION [None]
  - OCULAR ICTERUS [None]
  - PANCREATIC INSUFFICIENCY [None]
  - TINNITUS [None]
